FAERS Safety Report 24122641 (Version 2)
Quarter: 2024Q3

REPORT INFORMATION
  Report Type: Spontaneous
  Country: ES (occurrence: ES)
  Receive Date: 20240723
  Receipt Date: 20240723
  Transmission Date: 20241017
  Serious: Yes (Other)
  Sender: Unknown Manufacturer
  Company Number: ES-KOANAAP-SML-ES-2024-00727

PATIENT
  Age: 58 Year
  Sex: Female

DRUGS (4)
  1. GEMCITABINE [Suspect]
     Active Substance: GEMCITABINE
     Indication: Sclerosing epithelioid fibrosarcoma
     Dosage: NINE CYCLES
     Dates: start: 202010, end: 202102
  2. GEMCITABINE [Suspect]
     Active Substance: GEMCITABINE
     Indication: Metastases to lung
  3. DACARBAZINE [Suspect]
     Active Substance: DACARBAZINE
     Indication: Sclerosing epithelioid fibrosarcoma
     Dosage: NINE CYCLES
     Dates: start: 202010, end: 202102
  4. DACARBAZINE [Suspect]
     Active Substance: DACARBAZINE
     Indication: Metastases to lung

REACTIONS (2)
  - Drug ineffective [Unknown]
  - Disease progression [Unknown]
